FAERS Safety Report 9580082 (Version 2)
Quarter: 2013Q4

REPORT INFORMATION
  Report Type: Spontaneous
  Country: IT (occurrence: IT)
  Receive Date: 20131002
  Receipt Date: 20131028
  Transmission Date: 20140711
  Serious: Yes (Other)
  Sender: FDA-Public Use
  Company Number: IT-ROCHE-1283730

PATIENT
  Age: 7 Month
  Sex: Female

DRUGS (2)
  1. ROCEFIN [Suspect]
     Indication: PRODUCT USED FOR UNKNOWN INDICATION
     Route: 030
     Dates: start: 20130917, end: 20130919
  2. MORNIFLUMATE [Suspect]
     Indication: MUCOSAL INFLAMMATION
     Route: 054
     Dates: start: 20130920, end: 20130920

REACTIONS (1)
  - Crying [Unknown]
